FAERS Safety Report 5845162-4 (Version None)
Quarter: 2008Q3

REPORT INFORMATION
  Report Type: 
  Country: None (occurrence: None)
  Receive Date: 20080814
  Receipt Date: 20080806
  Transmission Date: 20090109
  Serious: Yes (Hospitalization, Other)
  Sender: FDA-Public Use
  Company Number: PHHY2008GB16988

PATIENT
  Sex: Male

DRUGS (1)
  1. COMTESS [Suspect]
     Indication: PARKINSON'S DISEASE

REACTIONS (2)
  - COMA [None]
  - SUDDEN ONSET OF SLEEP [None]
